FAERS Safety Report 4269911-4 (Version None)
Quarter: 2004Q1

REPORT INFORMATION
  Report Type: 
  Country: None (occurrence: None)
  Receive Date: 20040112
  Receipt Date: 20040112
  Transmission Date: 20041129
  Serious: Yes (Hospitalization)
  Sender: FDA-Public Use
  Company Number: None

PATIENT
  Age: 82 Year
  Sex: Male

DRUGS (4)
  1. NIFEDIPINE [Suspect]
     Indication: HYPERTENSION
     Dosage: 120 MG QD
     Dates: start: 20010401
  2. IRBESARTAN [Suspect]
     Indication: HYPERTENSION
     Dosage: 75 MG QD
     Dates: start: 20030930
  3. CLONIDINE [Concomitant]
  4. MECLIZINE [Concomitant]

REACTIONS (3)
  - BRADYCARDIA [None]
  - DIZZINESS [None]
  - RENAL FAILURE ACUTE [None]
